FAERS Safety Report 7742861-4 (Version None)
Quarter: 2011Q3

REPORT INFORMATION
  Report Type: 
  Country: None (occurrence: None)
  Receive Date: 20110819
  Receipt Date: 20110421
  Transmission Date: 20111222
  Serious: No
  Sender: FDA-Public Use
  Company Number: 031778

PATIENT
  Sex: Female

DRUGS (3)
  1. LACOSAMIDE [Suspect]
     Dosage: (50 MG BID)
  2. PHENYTOIN [Concomitant]
  3. PHENOBARBITAL TAB [Concomitant]

REACTIONS (4)
  - HEADACHE [None]
  - VISION BLURRED [None]
  - DIZZINESS [None]
  - NAUSEA [None]
